FAERS Safety Report 6432133-2 (Version None)
Quarter: 2009Q4

REPORT INFORMATION
  Report Type: 
  Country: None (occurrence: None)
  Receive Date: 20091109
  Receipt Date: 20091028
  Transmission Date: 20100525
  Serious: Yes (Hospitalization)
  Sender: FDA-Public Use
  Company Number: FR-SOLVAY-00209006546

PATIENT
  Age: 21075 Day
  Sex: Female

DRUGS (8)
  1. UTROGESTAN [Suspect]
     Indication: PROGESTERONE DECREASED
     Dosage: DAILY DOSE:  UNKNOWN
     Route: 048
     Dates: start: 20020101, end: 20090121
  2. PRETERAX [Suspect]
     Indication: HYPERTENSION
     Dosage: DAILY DOSE: 1 DOSAGE FORM
     Route: 048
     Dates: start: 20081219, end: 20090106
  3. PHYSIOTENS [Suspect]
     Indication: HYPERTENSION
     Dosage: DAILY DOSE:  UNKNOWN
     Route: 048
     Dates: start: 20090106, end: 20090110
  4. MEDIATOR [Suspect]
     Indication: DIABETES MELLITUS
     Dosage: DAILY DOSE:  UNKNOWN
     Route: 048
     Dates: start: 20040101, end: 20090110
  5. LIPANTHYL [Suspect]
     Indication: DYSLIPIDAEMIA
     Dosage: DAILY DOSE: 1 DOSAGE FORM
     Route: 048
     Dates: start: 20040101, end: 20090110
  6. MICARDIS [Suspect]
     Indication: HYPERTENSION
     Dosage: DAILY DOSE:  UNKNOWN
     Route: 048
     Dates: start: 20090110, end: 20090113
  7. METFORMIN HCL [Suspect]
     Indication: DIABETES MELLITUS
     Dosage: DAILY DOSE:  UNKNOWN
     Route: 048
     Dates: start: 20090110, end: 20090113
  8. ESTREVA [Suspect]
     Indication: OESTROGEN DEFICIENCY
     Dosage: DAILY DOSE:  UNKNOWN
     Route: 062
     Dates: start: 20020101, end: 20090120

REACTIONS (8)
  - AGITATION [None]
  - ANXIETY [None]
  - ARTHRALGIA [None]
  - ASTHENIA [None]
  - CHILLS [None]
  - HYPERTENSION [None]
  - MUCOSAL INFLAMMATION [None]
  - RASH SCARLATINIFORM [None]
